FAERS Safety Report 8933515 (Version 1)
Quarter: 2012Q4

REPORT INFORMATION
  Report Type: 
  Country: US (occurrence: US)
  Receive Date: 20121128
  Receipt Date: 20121128
  Transmission Date: 20130627
  Serious: No
  Sender: FDA-Public Use
  Company Number: US-ABBOTT-12P-163-1004725-00

PATIENT
  Age: 77 Year
  Sex: Male
  Weight: 83.99 kg

DRUGS (1)
  1. ANDROGEL [Suspect]
     Indication: BLOOD TESTOSTERONE DECREASED
     Dates: start: 201204

REACTIONS (4)
  - Dry skin [Not Recovered/Not Resolved]
  - Rash macular [Not Recovered/Not Resolved]
  - Rash pruritic [Recovering/Resolving]
  - Erythema [Not Recovered/Not Resolved]
